FAERS Safety Report 18316479 (Version 1)
Quarter: 2020Q3

REPORT INFORMATION
  Report Type: Spontaneous
  Country: FR (occurrence: FR)
  Receive Date: 20200927
  Receipt Date: 20200927
  Transmission Date: 20201103
  Serious: Yes (Hospitalization, Other)
  Sender: FDA-Public Use
  Company Number: FR-AUROBINDO-AUR-APL-2015-04415

PATIENT
  Age: 44 Year
  Sex: Female

DRUGS (2)
  1. AZITHROMYCIN ANHYDROUS. [Suspect]
     Active Substance: AZITHROMYCIN ANHYDROUS
     Indication: PNEUMONIA
     Dosage: UNK
     Route: 065
  2. LYMECYCLINE [Suspect]
     Active Substance: LYMECYCLINE
     Indication: PNEUMONIA
     Dosage: UNK
     Route: 016

REACTIONS (12)
  - Rash [Recovering/Resolving]
  - Lymphadenopathy [Recovering/Resolving]
  - Drug reaction with eosinophilia and systemic symptoms [Recovering/Resolving]
  - Hepatic failure [Recovering/Resolving]
  - Jaundice cholestatic [Recovering/Resolving]
  - Hepatomegaly [Recovering/Resolving]
  - Face oedema [Recovering/Resolving]
  - Pyrexia [Recovering/Resolving]
  - Hepatocellular injury [Recovering/Resolving]
  - Inappropriate antidiuretic hormone secretion [Recovering/Resolving]
  - Dermatitis exfoliative generalised [Recovering/Resolving]
  - Eosinophilia [Recovering/Resolving]
